FAERS Safety Report 9729696 (Version 1)
Quarter: 2013Q4

REPORT INFORMATION
  Report Type: Spontaneous
  Country: US (occurrence: US)
  Receive Date: 20131204
  Receipt Date: 20131204
  Transmission Date: 20140711
  Serious: No
  Sender: FDA-Public Use
  Company Number: US-GILEAD-2009-0020974

PATIENT
  Sex: Male
  Weight: 88.45 kg

DRUGS (13)
  1. LETAIRIS [Suspect]
     Indication: PULMONARY ARTERIAL HYPERTENSION
     Route: 048
     Dates: start: 20090219
  2. CIALIS [Concomitant]
  3. LOTREL [Concomitant]
  4. DILTIAZEM [Concomitant]
  5. BENAZEPRIL [Concomitant]
  6. SPIRONOLACTONE [Concomitant]
  7. LASIX [Concomitant]
  8. TORSEMIDE [Concomitant]
  9. ASPIRIN [Concomitant]
  10. FLOMAX [Concomitant]
  11. XANAX [Concomitant]
  12. LEVAQUIN [Concomitant]
  13. FISH OIL [Concomitant]

REACTIONS (4)
  - Pain in extremity [Unknown]
  - Weight increased [Recovering/Resolving]
  - Swelling [Recovering/Resolving]
  - Nasal congestion [Unknown]
